FAERS Safety Report 21926300 (Version 1)
Quarter: 2023Q1

REPORT INFORMATION
  Report Type: Spontaneous
  Country: US (occurrence: US)
  Receive Date: 20230130
  Receipt Date: 20230130
  Transmission Date: 20230418
  Serious: Yes (Hospitalization)
  Sender: FDA-Public Use
  Company Number: US-AMGEN-USASP2023009756

PATIENT
  Age: 66 Year
  Sex: Female

DRUGS (1)
  1. MVASI [Suspect]
     Active Substance: BEVACIZUMAB-AWWB
     Indication: Ovarian cancer
     Dosage: 400 MILLIGRAM (3 VIAL)
     Route: 065
     Dates: start: 20220609, end: 20221227

REACTIONS (4)
  - Chromaturia [Unknown]
  - Flank pain [Unknown]
  - Pelvic pain [Unknown]
  - Off label use [Unknown]

NARRATIVE: CASE EVENT DATE: 20220609
